FAERS Safety Report 10031922 (Version 2)
Quarter: 2014Q2

REPORT INFORMATION
  Report Type: Spontaneous
  Country: US (occurrence: US)
  Receive Date: 20140324
  Receipt Date: 20140411
  Transmission Date: 20141212
  Serious: Yes (Hospitalization)
  Sender: FDA-Public Use
  Company Number: US-BEH-2014041170

PATIENT
  Age: 9 Year
  Sex: Female
  Weight: 54 kg

DRUGS (4)
  1. BERINERT [Suspect]
     Dosage: AS DIRECTED; RATE OF 4 ML/MINUTE
     Route: 042
  2. BERINERT [Suspect]
     Indication: ENZYME ABNORMALITY
     Route: 042
  3. SODIUM CHLORIDE [Concomitant]
  4. EPI-PEN [Concomitant]

REACTIONS (2)
  - Hospitalisation [Unknown]
  - Angioedema [Recovered/Resolved]
